FAERS Safety Report 5291961-X (Version None)
Quarter: 2007Q2

REPORT INFORMATION
  Report Type: 
  Country: None (occurrence: None)
  Receive Date: 20070404
  Receipt Date: 20070326
  Transmission Date: 20071010
  Serious: Yes (Death, Hospitalization)
  Sender: FDA-Public Use
  Company Number: 220001L07JPN

PATIENT
  Age: 19 Year
  Sex: Male

DRUGS (2)
  1. SOMATROPIN (SOMATROPIN) [Suspect]
     Indication: BODY HEIGHT BELOW NORMAL
  2. LEVOTHYROXINE SODIUM [Concomitant]

REACTIONS (5)
  - ABDOMINAL DISTENSION [None]
  - B-CELL LYMPHOMA [None]
  - EPSTEIN-BARR VIRUS INFECTION [None]
  - HEPATOSPLENOMEGALY [None]
  - NO THERAPEUTIC RESPONSE [None]
